FAERS Safety Report 12614152 (Version 1)
Quarter: 2016Q3

REPORT INFORMATION
  Report Type: Spontaneous
  Country: US (occurrence: None)
  Receive Date: 20160801
  Receipt Date: 20160801
  Transmission Date: 20161109
  Serious: No
  Sender: FDA-Public Use
  Company Number: None

PATIENT
  Age: 65 Year
  Sex: Female

DRUGS (1)
  1. ESTRING [Suspect]
     Active Substance: ESTRADIOL
     Indication: ATROPHIC VULVOVAGINITIS
     Dosage: Q3 MONTHS VAGINAL
     Route: 067
     Dates: start: 20160430, end: 20160731

REACTIONS (3)
  - Drug ineffective [None]
  - Device malfunction [None]
  - Haemorrhage [None]

NARRATIVE: CASE EVENT DATE: 20160731
